FAERS Safety Report 8621246-2 (Version None)
Quarter: 2012Q3

REPORT INFORMATION
  Report Type: 
  Country: None (occurrence: None)
  Receive Date: 20120824
  Receipt Date: 20120821
  Transmission Date: 20120928
  Serious: Yes (Hospitalization)
  Sender: FDA-Public Use
  Company Number: NL-MERCK-1208NLD009414

PATIENT

DRUGS (2)
  1. ACENOCOUMAROL [Suspect]
  2. ZOCOR [Suspect]
     Dosage: 40 MG, UNK
     Route: 048

REACTIONS (2)
  - DRUG ADMINISTRATION ERROR [None]
  - GASTROINTESTINAL HAEMORRHAGE [None]
